FAERS Safety Report 7021216-4 (Version None)
Quarter: 2010Q3

REPORT INFORMATION
  Report Type: 
  Country: None (occurrence: None)
  Receive Date: 20100929
  Receipt Date: 20100921
  Transmission Date: 20110219
  Serious: Yes (Hospitalization, Other)
  Sender: FDA-Public Use
  Company Number: JP-PFIZER INC-2010107505

PATIENT
  Age: 18 Year
  Sex: Male

DRUGS (5)
  1. SILDENAFIL CITRATE [Suspect]
     Indication: PULMONARY HYPERTENSION
     Dosage: 6.25 MG, 4X/DAY
     Route: 048
  2. LASIX [Concomitant]
     Route: 048
  3. DIGITALIS [Concomitant]
     Dosage: UNK
  4. ALDACTONE [Concomitant]
     Dosage: UNK
     Route: 048
  5. DORNER [Concomitant]
     Dosage: UNK

REACTIONS (3)
  - CHEST DISCOMFORT [None]
  - HEADACHE [None]
  - RIGHT VENTRICULAR FAILURE [None]
